FAERS Safety Report 7854697-4 (Version None)
Quarter: 2011Q3

REPORT INFORMATION
  Report Type: 
  Country: None (occurrence: None)
  Receive Date: 20110916
  Receipt Date: 20101206
  Transmission Date: 20111222
  Serious: Yes (Hospitalization)
  Sender: FDA-Public Use
  Company Number: 2010SP063407

PATIENT
  Age: 18 Year
  Sex: Female
  Weight: 58.9676 kg

DRUGS (1)
  1. IMPLANON [Suspect]
     Indication: CONTRACEPTION
     Dosage: SBDE
     Route: 059
     Dates: start: 20100511

REACTIONS (5)
  - PYREXIA [None]
  - MIGRAINE [None]
  - IMPLANT SITE PAIN [None]
  - DIZZINESS [None]
  - MENORRHAGIA [None]
